FAERS Safety Report 16085482 (Version 1)
Quarter: 2019Q2

REPORT INFORMATION
  Report Type: Spontaneous
  Country: US (occurrence: US)
  Receive Date: 20190318
  Receipt Date: 20190318
  Transmission Date: 20190711
  Serious: No
  Sender: FDA-Public Use
  Company Number: None

PATIENT
  Age: 57 Year
  Sex: Female

DRUGS (1)
  1. NP THYROID [Suspect]
     Active Substance: LEVOTHYROXINE\LIOTHYRONINE
     Route: 048
     Dates: start: 20181228, end: 20190318

REACTIONS (4)
  - Drug ineffective [None]
  - Thyroid pain [None]
  - Lymphadenopathy [None]
  - Malaise [None]

NARRATIVE: CASE EVENT DATE: 20190318
